FAERS Safety Report 17742657 (Version 1)
Quarter: 2020Q2

REPORT INFORMATION
  Report Type: Spontaneous
  Country: GR (occurrence: GR)
  Receive Date: 20200505
  Receipt Date: 20200505
  Transmission Date: 20200714
  Serious: Yes (Death, Hospitalization)
  Sender: FDA-Public Use
  Company Number: GR-TEVA-2020-GR-1231198

PATIENT
  Age: 5 Year
  Sex: Male

DRUGS (13)
  1. ANTITHYMOCYTE GLOBULIN [Suspect]
     Active Substance: THYMOCYTE IMMUNE GLOBULIN NOS
     Indication: IMMUNOSUPPRESSANT DRUG THERAPY
     Route: 065
  2. PYRIMETHAMINE [Suspect]
     Active Substance: PYRIMETHAMINE
     Route: 065
  3. METHOTREXATE. [Suspect]
     Active Substance: METHOTREXATE
     Indication: IMMUNOSUPPRESSANT DRUG THERAPY
     Dosage: ON DAY-1, D3, AND D6, POST TRANSPLANTATION
     Route: 065
  4. BUSULFAN. [Suspect]
     Active Substance: BUSULFAN
     Indication: IMMUNOSUPPRESSANT DRUG THERAPY
     Dosage: FOR FOUR CONSECUTIVE DAYS
     Route: 065
  5. COTRIMOXAZOLE [Suspect]
     Active Substance: SULFAMETHOXAZOLE\TRIMETHOPRIM
     Indication: ACUTE RESPIRATORY DISTRESS SYNDROME
     Route: 065
  6. PYRIMETHAMINE [Suspect]
     Active Substance: PYRIMETHAMINE
     Indication: ACUTE RESPIRATORY DISTRESS SYNDROME
     Route: 065
  7. THIOTEPA. [Suspect]
     Active Substance: THIOTEPA
     Indication: IMMUNOSUPPRESSANT DRUG THERAPY
     Dosage: 5MG/KG X2 FOR ONE DAY
     Route: 065
  8. ANTITHYMOCYTE GLOBULIN [Suspect]
     Active Substance: THYMOCYTE IMMUNE GLOBULIN NOS
     Indication: PROPHYLAXIS AGAINST GRAFT VERSUS HOST DISEASE
  9. CLINDAMYCIN. [Suspect]
     Active Substance: CLINDAMYCIN
     Indication: ACUTE RESPIRATORY DISTRESS SYNDROME
     Dosage: 40 MG/KG DAILY;
     Route: 065
  10. CYCLOSPORINE. [Suspect]
     Active Substance: CYCLOSPORINE
     Indication: IMMUNOSUPPRESSANT DRUG THERAPY
     Route: 065
  11. FLUDARABINE [Suspect]
     Active Substance: FLUDARABINE PHOSPHATE
     Indication: IMMUNOSUPPRESSANT DRUG THERAPY
     Dosage: FOR FIVE CONSECUTIVE DAYS
     Route: 065
  12. METHOTREXATE. [Suspect]
     Active Substance: METHOTREXATE
     Indication: PROPHYLAXIS AGAINST GRAFT VERSUS HOST DISEASE
  13. CYCLOSPORINE. [Suspect]
     Active Substance: CYCLOSPORINE
     Indication: PROPHYLAXIS AGAINST GRAFT VERSUS HOST DISEASE

REACTIONS (3)
  - Therapy non-responder [Fatal]
  - Acute respiratory distress syndrome [Fatal]
  - Disseminated toxoplasmosis [Fatal]
